FAERS Safety Report 17205963 (Version 1)
Quarter: 2019Q4

REPORT INFORMATION
  Report Type: Spontaneous
  Country: US (occurrence: US)
  Receive Date: 20191227
  Receipt Date: 20191227
  Transmission Date: 20200122
  Serious: No
  Sender: FDA-Public Use
  Company Number: US-TEVA-2019-US-1158821

PATIENT
  Sex: Female

DRUGS (1)
  1. BUPRENORPHINE TEVA [Suspect]
     Active Substance: BUPRENORPHINE
     Indication: PAIN
     Dosage: 15 MCG / HR
     Route: 065

REACTIONS (10)
  - Insomnia [Unknown]
  - Tremor [Unknown]
  - Vomiting [Unknown]
  - Product adhesion issue [Unknown]
  - Diarrhoea [Unknown]
  - Thinking abnormal [Unknown]
  - Anxiety [Unknown]
  - Hypersomnia [Unknown]
  - Hyperhidrosis [Unknown]
  - Product quality issue [Unknown]
